FAERS Safety Report 22516697 (Version 1)
Quarter: 2023Q2

REPORT INFORMATION
  Report Type: Spontaneous
  Country: IT (occurrence: IT)
  Receive Date: 20230603
  Receipt Date: 20230603
  Transmission Date: 20230721
  Serious: Yes (Hospitalization)
  Sender: FDA-Public Use
  Company Number: IT-MINISAL02-926568

PATIENT
  Age: 74 Year
  Sex: Female

DRUGS (7)
  1. ACETAMINOPHEN [Suspect]
     Active Substance: ACETAMINOPHEN
     Indication: Product used for unknown indication
     Dosage: 4 DOSAGE FORM (TOTAL)
     Route: 048
     Dates: start: 20220729
  2. EN [Suspect]
     Active Substance: DELORAZEPAM
     Indication: Product used for unknown indication
     Dosage: 40 DOSAGE FORM (TOTAL)
     Route: 048
     Dates: start: 20220729
  3. LANOXIN [Suspect]
     Active Substance: DIGOXIN
     Indication: Product used for unknown indication
     Dosage: 0.12 MILLIGRAM (DOSAGE: 60 UNIT OF MEASURE: DOSING UNIT FREQUENCY OF ADMINISTRATION: TOTAL ROUTE OF
     Route: 048
     Dates: start: 20220729
  4. ELIQUIS [Concomitant]
     Active Substance: APIXABAN
     Indication: Product used for unknown indication
     Dosage: 5 MILLIGRAM, TWO TIMES A DAY
     Route: 065
  5. LASIX [Concomitant]
     Active Substance: FUROSEMIDE
     Indication: Product used for unknown indication
     Dosage: 25 MILLIGRAM
     Route: 065
  6. ROSUVASTATIN [Concomitant]
     Active Substance: ROSUVASTATIN
     Indication: Product used for unknown indication
     Dosage: 10 MILLIGRAM, ONCE A DAY (DOSAGE: 10UNIT OF MEASUREMENT: MILLIGRAMS)
     Route: 065
  7. RAMIPRIL [Concomitant]
     Active Substance: RAMIPRIL
     Indication: Product used for unknown indication
     Dosage: 5 MILLIGRAM, ONCE A DAY
     Route: 065

REACTIONS (2)
  - Apraxia [Recovering/Resolving]
  - Toxicity to various agents [Recovering/Resolving]

NARRATIVE: CASE EVENT DATE: 20220729
